FAERS Safety Report 13250043 (Version 2)
Quarter: 2017Q3

REPORT INFORMATION
  Report Type: Spontaneous
  Country: US (occurrence: US)
  Receive Date: 20170218
  Receipt Date: 20170929
  Transmission Date: 20171127
  Serious: Yes (Other)
  Sender: FDA-Public Use
  Company Number: US-ALLERGAN-1666132US

PATIENT
  Age: 58 Year
  Sex: Female

DRUGS (1)
  1. RESTASIS [Suspect]
     Active Substance: CYCLOSPORINE
     Indication: DRY EYE
     Dosage: UNK
     Route: 047
     Dates: end: 201606

REACTIONS (5)
  - Eyelid disorder [Not Recovered/Not Resolved]
  - Knee operation [Unknown]
  - Drug dose omission [Unknown]
  - Eye disorder [Unknown]
  - Dry eye [Unknown]

NARRATIVE: CASE EVENT DATE: 201606
